FAERS Safety Report 15414983 (Version 1)
Quarter: 2018Q3

REPORT INFORMATION
  Report Type: Spontaneous
  Country: CA (occurrence: CA)
  Receive Date: 20180921
  Receipt Date: 20180921
  Transmission Date: 20181010
  Serious: Yes (Other)
  Sender: FDA-Public Use
  Company Number: CA-PFIZER INC-2018164679

PATIENT
  Age: 55 Year
  Sex: Female
  Weight: 87 kg

DRUGS (8)
  1. XELJANZ [Suspect]
     Active Substance: TOFACITINIB CITRATE
     Dosage: 5 MG, 2X/DAY
     Route: 048
     Dates: start: 20180728, end: 20180820
  2. XELJANZ [Suspect]
     Active Substance: TOFACITINIB CITRATE
     Indication: RHEUMATOID ARTHRITIS
     Dosage: 5 MG, 2X/DAY
     Route: 048
     Dates: start: 20180721
  3. LEFLUNOMIDE. [Concomitant]
     Active Substance: LEFLUNOMIDE
     Indication: RHEUMATOID ARTHRITIS
     Dosage: 20 MG, UNK
     Dates: start: 201702
  4. 3 OMEGAS [Concomitant]
     Indication: BLOOD CHOLESTEROL
     Dosage: UNK
  5. PLAQUENIL [HYDROXYCHLOROQUINE SULFATE] [Concomitant]
     Indication: RHEUMATOID ARTHRITIS
  6. LIPITOR [Concomitant]
     Active Substance: ATORVASTATIN CALCIUM
     Dosage: UNK
     Dates: start: 201805
  7. RANITIDINE. [Concomitant]
     Active Substance: RANITIDINE
     Indication: ANTACID THERAPY
     Dosage: UNK
  8. XELJANZ [Suspect]
     Active Substance: TOFACITINIB CITRATE
     Dosage: 5 MG, 2X/DAY
     Route: 048
     Dates: start: 20180723, end: 20180820

REACTIONS (11)
  - Diarrhoea [Recovered/Resolved]
  - Blood sodium increased [Unknown]
  - Fatigue [Recovering/Resolving]
  - Dizziness [Recovered/Resolved]
  - Urinary tract infection [Unknown]
  - Nausea [Not Recovered/Not Resolved]
  - Abdominal discomfort [Unknown]
  - Malaise [Recovered/Resolved]
  - Blood potassium decreased [Unknown]
  - Condition aggravated [Recovered/Resolved]
  - Asthenia [Recovered/Resolved]

NARRATIVE: CASE EVENT DATE: 2018
